FAERS Safety Report 9379684 (Version 1)
Quarter: 2013Q3

REPORT INFORMATION
  Report Type: Spontaneous
  Country: JP (occurrence: JP)
  Receive Date: 20130702
  Receipt Date: 20130702
  Transmission Date: 20140515
  Serious: Yes (Life-Threatening)
  Sender: FDA-Public Use
  Company Number: JP-ELI_LILLY_AND_COMPANY-JP201305005124

PATIENT
  Age: 35 Year
  Sex: Female

DRUGS (9)
  1. LAMICTAL [Suspect]
     Indication: DEPENDENCE
     Dosage: 50 MG, EACH MORNING
     Route: 048
     Dates: start: 20130405, end: 20130416
  2. LAMICTAL [Suspect]
     Indication: DEPRESSION
  3. MYSLEE [Concomitant]
     Indication: INSOMNIA
     Dosage: 10 MG, EACH EVENING
     Route: 048
     Dates: start: 20121005
  4. MYSLEE [Concomitant]
     Indication: DEPRESSION
  5. CERCINE [Concomitant]
     Indication: ANXIETY
     Dosage: 5 MG, PRN
     Route: 048
     Dates: start: 20120723
  6. CERCINE [Concomitant]
     Indication: DEPRESSION
  7. CYMBALTA [Suspect]
     Indication: DEPRESSION
     Dosage: 20 MG, QD
     Route: 048
     Dates: start: 20120702, end: 20120823
  8. CYMBALTA [Suspect]
     Dosage: 40 MG, QD
     Route: 048
     Dates: start: 20120824, end: 20120913
  9. CYMBALTA [Suspect]
     Dosage: 60 MG, QD
     Route: 048
     Dates: start: 20120914

REACTIONS (7)
  - Faecal incontinence [Recovered/Resolved]
  - Lymphadenopathy [Unknown]
  - Lacrimation increased [Unknown]
  - Pruritus [Unknown]
  - Rash pruritic [Unknown]
  - Feeling hot [Unknown]
  - Stevens-Johnson syndrome [Recovered/Resolved]
